FAERS Safety Report 21491540 (Version 1)
Quarter: 2022Q4

REPORT INFORMATION
  Report Type: Report from Study
  Country: CA (occurrence: CA)
  Receive Date: 20221021
  Receipt Date: 20221021
  Transmission Date: 20230113
  Serious: Yes (Other)
  Sender: FDA-Public Use
  Company Number: CA-BoehringerIngelheim-2020-BI-060330

PATIENT
  Age: 73 Year
  Sex: Male

DRUGS (2)
  1. OFEV [Suspect]
     Active Substance: NINTEDANIB
     Indication: Idiopathic pulmonary fibrosis
     Route: 048
     Dates: start: 20200106
  2. COVID-19 VACCINE 3RD DOSE BOOSTER [Concomitant]
     Indication: Product used for unknown indication
     Route: 065

REACTIONS (14)
  - Idiopathic pulmonary fibrosis [Recovered/Resolved]
  - Weight decreased [Not Recovered/Not Resolved]
  - Lower limb fracture [Recovered/Resolved]
  - Dyspnoea exertional [Not Recovered/Not Resolved]
  - Oxygen saturation abnormal [Not Recovered/Not Resolved]
  - Neutrophil count increased [Unknown]
  - Cataract [Not Recovered/Not Resolved]
  - Dyspnoea [Recovering/Resolving]
  - Respiratory tract inflammation [Recovering/Resolving]
  - Diarrhoea [Recovered/Resolved]
  - Abdominal pain [Not Recovered/Not Resolved]
  - Flatulence [Not Recovered/Not Resolved]
  - Muscle spasms [Not Recovered/Not Resolved]
  - White blood cell count increased [Unknown]

NARRATIVE: CASE EVENT DATE: 20210901
